FAERS Safety Report 19043315 (Version 1)
Quarter: 2021Q1

REPORT INFORMATION
  Report Type: Spontaneous
  Country: US (occurrence: US)
  Receive Date: 20210323
  Receipt Date: 20210323
  Transmission Date: 20210420
  Serious: Yes (Hospitalization)
  Sender: FDA-Public Use
  Company Number: US-ROCHE-2791362

PATIENT
  Sex: Male

DRUGS (1)
  1. XOLAIR [Suspect]
     Active Substance: OMALIZUMAB
     Indication: CYSTIC FIBROSIS
     Dosage: ONGOING: YES
     Route: 058
     Dates: start: 20191105

REACTIONS (2)
  - Off label use [Unknown]
  - Infective pulmonary exacerbation of cystic fibrosis [Unknown]
